FAERS Safety Report 9342331 (Version 1)
Quarter: 2013Q2

REPORT INFORMATION
  Report Type: Spontaneous
  Country: IT (occurrence: None)
  Receive Date: 20130607
  Receipt Date: 20130607
  Transmission Date: 20140414
  Serious: Yes (Hospitalization)
  Sender: FDA-Public Use
  Company Number: AUR-APL-2013-04655

PATIENT
  Age: 41 Year
  Sex: Female

DRUGS (2)
  1. PAROXETINE [Suspect]
     Indication: DEPRESSION
     Route: 048
     Dates: start: 20130125, end: 20130125
  2. ALPRAZOLAM (ALPRAZOLAM) [Suspect]
     Indication: DEPRESSION
     Route: 048
     Dates: start: 20130125, end: 20130125

REACTIONS (4)
  - Nausea [None]
  - Tremor [None]
  - Sopor [None]
  - Suicidal ideation [None]
